FAERS Safety Report 9166081 (Version 1)
Quarter: 2013Q1

REPORT INFORMATION
  Report Type: Spontaneous
  Country: GB (occurrence: None)
  Receive Date: 20130301
  Receipt Date: 20130301
  Transmission Date: 20140127
  Serious: Yes (Other)
  Sender: FDA-Public Use
  Company Number: AUR-APL-2013-01378

PATIENT
  Age: 21 Year
  Sex: Male
  Weight: 63.5 kg

DRUGS (2)
  1. CITALOPRAM(CITALOPRAM) [Suspect]
     Indication: ANXIETY
     Route: 048
     Dates: start: 200907, end: 201102
  2. CITALOPRAM(CITALOPRAM) [Suspect]
     Indication: PALPITATIONS
     Route: 048
     Dates: start: 200907, end: 201102

REACTIONS (9)
  - Sexual dysfunction [None]
  - Emotional disorder [None]
  - Anxiety [None]
  - Dissociation [None]
  - Feeling abnormal [None]
  - Disturbance in attention [None]
  - Feeling abnormal [None]
  - Fatigue [None]
  - Cognitive disorder [None]
